FAERS Safety Report 23835579 (Version 2)
Quarter: 2024Q4

REPORT INFORMATION
  Report Type: Spontaneous
  Country: US (occurrence: US)
  Receive Date: 20240509
  Receipt Date: 20241113
  Transmission Date: 20250114
  Serious: No
  Sender: AMNEAL
  Company Number: US-AMNEAL PHARMACEUTICALS-2024-AMRX-00360

PATIENT

DRUGS (1)
  1. GLYCOPYRROLATE [Suspect]
     Active Substance: GLYCOPYRROLATE
     Indication: Product used for unknown indication
     Dosage: 0.4MG/2ML
     Route: 065

REACTIONS (4)
  - Device connection issue [Unknown]
  - Device-device incompatibility [Unknown]
  - Device delivery system issue [Unknown]
  - No adverse event [Unknown]
